FAERS Safety Report 4355309-7 (Version None)
Quarter: 2004Q2

REPORT INFORMATION
  Report Type: 
  Country: None (occurrence: None)
  Receive Date: 20040504
  Receipt Date: 20030731
  Transmission Date: 20050107
  Serious: No
  Sender: FDA-Public Use
  Company Number: 200303123

PATIENT
  Age: 15 Year
  Sex: Female

DRUGS (2)
  1. TYLENOL [Suspect]
     Indication: SUICIDE ATTEMPT
     Dosage: PO
     Route: 048
  2. FENPROPOREX [Suspect]
     Indication: SUICIDE ATTEMPT

REACTIONS (4)
  - AGITATION [None]
  - INTENTIONAL MISUSE [None]
  - SUICIDE ATTEMPT [None]
  - TACHYPNOEA [None]
